FAERS Safety Report 5429770-0 (Version None)
Quarter: 2007Q3

REPORT INFORMATION
  Report Type: 
  Country: None (occurrence: None)
  Receive Date: 20070731
  Receipt Date: 20070411
  Transmission Date: 20080115
  Serious: No
  Sender: FDA-Public Use
  Company Number: US200704003002

PATIENT
  Age: 66 Year
  Sex: Female
  Weight: 86.6 kg

DRUGS (3)
  1. BYETTA [Suspect]
     Indication: TYPE 2 DIABETES MELLITUS
     Dosage: 5 UG, 2/D, SUBCUTANEOUS
     Route: 058
  2. EXENATIDE 5MCG PEN, DISPOSABLE DEVICE (EXENATIDE PEN (5MCG) PEN,DISPOS [Concomitant]
  3. METFORMIN HCL [Concomitant]

REACTIONS (4)
  - DIARRHOEA [None]
  - PYREXIA [None]
  - VOMITING [None]
  - WEIGHT DECREASED [None]
